FAERS Safety Report 16979456 (Version 1)
Quarter: 2019Q4

REPORT INFORMATION
  Report Type: Spontaneous
  Country: US (occurrence: US)
  Receive Date: 20191031
  Receipt Date: 20191031
  Transmission Date: 20200122
  Serious: Yes (Other)
  Sender: FDA-Public Use
  Company Number: US-PFIZER INC-2019466503

PATIENT
  Sex: Male

DRUGS (1)
  1. XANAX [Suspect]
     Active Substance: ALPRAZOLAM
     Dosage: UNK

REACTIONS (7)
  - Constipation [Unknown]
  - Gingivitis [Unknown]
  - Upper limb fracture [Unknown]
  - Tooth fracture [Unknown]
  - Spinal compression fracture [Unknown]
  - Musculoskeletal pain [Unknown]
  - Somnambulism [Unknown]
